FAERS Safety Report 22526719 (Version 1)
Quarter: 2023Q2

REPORT INFORMATION
  Report Type: Spontaneous
  Country: US (occurrence: US)
  Receive Date: 20230606
  Receipt Date: 20230606
  Transmission Date: 20230721
  Serious: Yes (Other)
  Sender: FDA-Public Use
  Company Number: US-MYLANLABS-2023M1059099

PATIENT
  Age: 62 Year
  Sex: Male

DRUGS (6)
  1. GABAPENTIN [Suspect]
     Active Substance: GABAPENTIN
     Indication: Axillary nerve injury
     Dosage: UNK
     Route: 065
  2. GABAPENTIN [Suspect]
     Active Substance: GABAPENTIN
     Indication: Neuralgia
  3. MOTRIN [Suspect]
     Active Substance: IBUPROFEN
     Indication: Axillary nerve injury
     Dosage: UNK
     Route: 065
  4. MOTRIN [Suspect]
     Active Substance: IBUPROFEN
     Indication: Neuralgia
  5. MEDROL [Suspect]
     Active Substance: METHYLPREDNISOLONE
     Indication: Axillary nerve injury
     Dosage: UNK
     Route: 065
  6. MEDROL [Suspect]
     Active Substance: METHYLPREDNISOLONE
     Indication: Neuralgia

REACTIONS (1)
  - Drug ineffective [Unknown]
